FAERS Safety Report 25362210 (Version 1)
Quarter: 2025Q2

REPORT INFORMATION
  Report Type: Spontaneous
  Country: US (occurrence: None)
  Receive Date: 20250524
  Receipt Date: 20250524
  Transmission Date: 20250716
  Serious: Yes (Other)
  Sender: FDA-CTU
  Company Number: None

PATIENT
  Age: 25 Year
  Sex: Male
  Weight: 130.5 kg

DRUGS (5)
  1. MUCINEX [Suspect]
     Active Substance: GUAIFENESIN
     Indication: Cough
     Dates: start: 20250522, end: 20250524
  2. Hydrochlorthiazied [Concomitant]
  3. DULOXETINE [Concomitant]
     Active Substance: DULOXETINE
  4. PROTONIX [Concomitant]
     Active Substance: PANTOPRAZOLE SODIUM
  5. Amitryptillin [Concomitant]

REACTIONS (1)
  - Panic attack [None]

NARRATIVE: CASE EVENT DATE: 20250524
